FAERS Safety Report 7033973-1 (Version None)
Quarter: 2010Q4

REPORT INFORMATION
  Report Type: 
  Country: None (occurrence: None)
  Receive Date: 20101005
  Receipt Date: 20100920
  Transmission Date: 20110411
  Serious: Yes (Other)
  Sender: FDA-Public Use
  Company Number: US-1183454

PATIENT
  Sex: Male

DRUGS (1)
  1. TOBRADEX [Suspect]
     Dosage: (1 GTT QID OS OPHTHALMIC)
     Route: 047
     Dates: start: 20100911

REACTIONS (3)
  - CHEST PAIN [None]
  - HEADACHE [None]
  - RASH [None]
